FAERS Safety Report 19442315 (Version 1)
Quarter: 2021Q2

REPORT INFORMATION
  Report Type: Other
  Country: US (occurrence: US)
  Receive Date: 20210621
  Receipt Date: 20210621
  Transmission Date: 20210717
  Serious: No
  Sender: FDA-Public Use
  Company Number: US-ACORDA-ACO_168924_2021

PATIENT
  Age: 68 Year
  Sex: Female

DRUGS (2)
  1. INBRIJA [Suspect]
     Active Substance: LEVODOPA
     Indication: ON AND OFF PHENOMENON
  2. INBRIJA [Suspect]
     Active Substance: LEVODOPA
     Indication: PARKINSON^S DISEASE
     Dosage: 2 DOSAGE FORM (84 MG), PRN; NOT TO EXCEED 5 DOSES A DAY
     Dates: start: 20210508

REACTIONS (4)
  - Drug ineffective [Unknown]
  - Cough [Not Recovered/Not Resolved]
  - Device issue [Unknown]
  - Retching [Unknown]

NARRATIVE: CASE EVENT DATE: 20210508
